FAERS Safety Report 8295732-1 (Version None)
Quarter: 2012Q2

REPORT INFORMATION
  Report Type: 
  Country: None (occurrence: None)
  Receive Date: 20120418
  Receipt Date: 20120413
  Transmission Date: 20120825
  Serious: No
  Sender: FDA-Public Use
  Company Number: US-PFIZER INC-2012092906

PATIENT
  Sex: Female
  Weight: 65.4 kg

DRUGS (4)
  1. LIPITOR [Suspect]
     Indication: BLOOD CHOLESTEROL INCREASED
     Dosage: 10 MG ONCE A DAY
     Route: 048
  2. ASPIRIN [Concomitant]
     Dosage: 81 MG, UNK
  3. LISINOPRIL [Concomitant]
     Dosage: 2.5 MG, UNK
  4. LIPITOR [Suspect]
     Dosage: 40 MG ONCE A DAY
     Route: 048

REACTIONS (3)
  - MYALGIA [None]
  - BLOOD CHOLESTEROL INCREASED [None]
  - ASTHENIA [None]
